FAERS Safety Report 5694440-0 (Version None)
Quarter: 2008Q2

REPORT INFORMATION
  Report Type: 
  Country: None (occurrence: None)
  Receive Date: 20080404
  Receipt Date: 20080328
  Transmission Date: 20081010
  Serious: Yes (Hospitalization)
  Sender: FDA-Public Use
  Company Number: IT-ABBOTT-05P-083-0303446-00

PATIENT
  Sex: Male
  Weight: 62 kg

DRUGS (8)
  1. HUMIRA [Suspect]
     Indication: RHEUMATOID ARTHRITIS
     Route: 058
     Dates: start: 20041123, end: 20050412
  2. METHOTREXATE [Concomitant]
     Indication: RHEUMATOID ARTHRITIS
     Dates: start: 20031201, end: 20050413
  3. METHYLPREDNISOLONE [Concomitant]
     Indication: RHEUMATOID ARTHRITIS
     Dates: start: 20031201, end: 20050413
  4. RANITIDINE HYDROCHLORIDE [Concomitant]
     Indication: PROPHYLAXIS AGAINST GASTROINTESTINAL ULCER
     Dates: start: 20031201, end: 20050413
  5. COMMERCIAL HUMIRA [Concomitant]
     Indication: RHEUMATOID ARTHRITIS
     Route: 058
     Dates: start: 20040914
  6. OMEPRAZOLO [Concomitant]
     Indication: PROPHYLAXIS AGAINST GASTROINTESTINAL ULCER
     Dates: start: 20050401, end: 20050601
  7. PAROXETINA [Concomitant]
     Indication: ANXIETY
     Dates: start: 20050401
  8. CALCIPARINA [Concomitant]
     Indication: THROMBOSIS PROPHYLAXIS
     Dates: start: 20050601

REACTIONS (7)
  - ANAL ABSCESS [None]
  - ANAL FISTULA [None]
  - ANORECTAL STENOSIS [None]
  - COLONIC OBSTRUCTION [None]
  - FOREIGN BODY TRAUMA [None]
  - RECTAL HAEMORRHAGE [None]
  - SOFT TISSUE INFLAMMATION [None]
